FAERS Safety Report 25192205 (Version 1)
Quarter: 2025Q2

REPORT INFORMATION
  Report Type: Spontaneous
  Country: US (occurrence: None)
  Receive Date: 20250414
  Receipt Date: 20250414
  Transmission Date: 20250717
  Serious: Yes (unspecified)
  Sender: FDA-CTU
  Company Number: None

PATIENT
  Age: 56 Year
  Sex: Male
  Weight: 85.5 kg

DRUGS (1)
  1. HUMALOG [Suspect]
     Active Substance: INSULIN LISPRO
     Dates: start: 20250101

REACTIONS (5)
  - Physical product label issue [None]
  - Product packaging quantity issue [None]
  - Product dispensing error [None]
  - Product dispensing error [None]
  - Incorrect product dosage form administered [None]

NARRATIVE: CASE EVENT DATE: 20250402
